FAERS Safety Report 10010287 (Version 1)
Quarter: 2014Q1

REPORT INFORMATION
  Report Type: Spontaneous
  Country: IN (occurrence: IN)
  Receive Date: 20140314
  Receipt Date: 20140314
  Transmission Date: 20141002
  Serious: Yes (Hospitalization)
  Sender: FDA-Public Use
  Company Number: IN-PAR PHARMACEUTICAL, INC-2014SCPR008967

PATIENT
  Sex: 0

DRUGS (2)
  1. DOXYCYCLINE [Suspect]
     Indication: LIMB INJURY
     Dosage: UNK UNK, SINGLE
     Route: 065
  2. DOXYCYCLINE [Suspect]
     Indication: FALL

REACTIONS (1)
  - Drug eruption [Recovered/Resolved]
